FAERS Safety Report 11841131 (Version 1)
Quarter: 2015Q4

REPORT INFORMATION
  Report Type: Report from Study
  Country: GB (occurrence: GB)
  Receive Date: 20151216
  Receipt Date: 20151216
  Transmission Date: 20160305
  Serious: Yes (Death, Hospitalization, Other)
  Sender: FDA-Public Use
  Company Number: GB-CELGENE-167-20785-13060791

PATIENT
  Age: 84 Year
  Sex: Male

DRUGS (8)
  1. DEXAMETHASONE. [Suspect]
     Active Substance: DEXAMETHASONE
     Indication: PLASMA CELL MYELOMA
     Route: 048
     Dates: start: 20100927
  2. THALIDOMIDE [Suspect]
     Active Substance: THALIDOMIDE
     Indication: PLASMA CELL MYELOMA
     Route: 048
     Dates: start: 20100927
  3. CYCLOPHOSPHAMIDE. [Suspect]
     Active Substance: CYCLOPHOSPHAMIDE
     Indication: PLASMA CELL MYELOMA
     Route: 048
     Dates: start: 20100927
  4. THALIDOMIDE [Suspect]
     Active Substance: THALIDOMIDE
     Dosage: 500 MILLIGRAM
     Route: 048
  5. THALIDOMIDE [Suspect]
     Active Substance: THALIDOMIDE
     Route: 048
     Dates: end: 20110402
  6. THALIDOMIDE [Suspect]
     Active Substance: THALIDOMIDE
     Route: 048
  7. THALIDOMIDE [Suspect]
     Active Substance: THALIDOMIDE
     Route: 048
  8. THALIDOMIDE [Suspect]
     Active Substance: THALIDOMIDE
     Route: 048

REACTIONS (2)
  - Cardiac failure [Fatal]
  - Bladder transitional cell carcinoma stage III [Not Recovered/Not Resolved]

NARRATIVE: CASE EVENT DATE: 20110823
